FAERS Safety Report 9167555 (Version 2)
Quarter: 2013Q2

REPORT INFORMATION
  Report Type: Spontaneous
  Country: US (occurrence: None)
  Receive Date: 20130301
  Receipt Date: 20130501
  Transmission Date: 20140414
  Serious: Yes (Hospitalization)
  Sender: FDA-Public Use
  Company Number: UTC-028998

PATIENT
  Age: 56 Year
  Sex: Male
  Weight: 109 kg

DRUGS (1)
  1. REMODULIN [Suspect]
     Indication: PULMONARY ARTERIAL HYPERTENSION
     Route: 058
     Dates: start: 20110510

REACTIONS (7)
  - Abdominal pain [None]
  - Atrial fibrillation [None]
  - Hyperkalaemia [None]
  - Treatment noncompliance [None]
  - Drug administration error [None]
  - Incorrect dose administered [None]
  - Intentional drug misuse [None]
